FAERS Safety Report 4634787-X (Version None)
Quarter: 2005Q2

REPORT INFORMATION
  Report Type: 
  Country: None (occurrence: None)
  Receive Date: 20050412
  Receipt Date: 20050328
  Transmission Date: 20051028
  Serious: Yes (Hospitalization)
  Sender: FDA-Public Use
  Company Number: DSA_81241_2005

PATIENT
  Sex: Female

DRUGS (1)
  1. XYREM [Suspect]
     Dosage: 2.25 G TWICE NIGHTLY PO
     Route: 048
     Dates: start: 20040329

REACTIONS (8)
  - BLOOD TEST ABNORMAL [None]
  - CARDIAC FAILURE CONGESTIVE [None]
  - COLON CANCER [None]
  - CORONARY ARTERY DISEASE [None]
  - CORONARY ARTERY OCCLUSION [None]
  - GASTROINTESTINAL HAEMORRHAGE [None]
  - MYOCARDIAL INFARCTION [None]
  - TROPONIN INCREASED [None]
